FAERS Safety Report 8813638 (Version 1)
Quarter: 2012Q4

REPORT INFORMATION
  Report Type: 
  Country: US (occurrence: US)
  Receive Date: 20120927
  Receipt Date: 20120927
  Transmission Date: 20130627
  Serious: No
  Sender: FDA-Public Use
  Company Number: US-009507513-1209USA008508

PATIENT
  Sex: Female

DRUGS (4)
  1. SINEMET [Suspect]
     Indication: PARKINSON^S DISEASE
     Dosage: 1.5 Tablet, q2h
     Route: 048
     Dates: start: 2007
  2. SINEMET [Suspect]
     Dosage: 1.5 DF, q2h
     Route: 048
  3. CARBIDOPA (+) LEVODOPA [Suspect]
     Dosage: UNK
     Dates: start: 2010
  4. CARBIDOPA (+) LEVODOPA [Suspect]
     Dosage: UNK

REACTIONS (4)
  - Pruritus generalised [Not Recovered/Not Resolved]
  - Drug ineffective [Unknown]
  - Paraesthesia [Not Recovered/Not Resolved]
  - Generalised erythema [Not Recovered/Not Resolved]
